FAERS Safety Report 14308212 (Version 1)
Quarter: 2017Q4

REPORT INFORMATION
  Report Type: Spontaneous
  Country: US (occurrence: US)
  Receive Date: 20171219
  Receipt Date: 20171219
  Transmission Date: 20180321
  Serious: No
  Sender: FDA-Public Use
  Company Number: None

PATIENT
  Age: 22 Year
  Sex: Female
  Weight: 65 kg

DRUGS (3)
  1. MIRENA [Suspect]
     Active Substance: LEVONORGESTREL
  2. VENTOLIN [Concomitant]
     Active Substance: ALBUTEROL SULFATE
  3. MULTIVITAMIN [Concomitant]
     Active Substance: VITAMINS

REACTIONS (9)
  - Anxiety [None]
  - Sleep disorder [None]
  - Depression [None]
  - Hormone level abnormal [None]
  - Fungal infection [None]
  - Dizziness [None]
  - Vaginal haemorrhage [None]
  - Abdominal pain [None]
  - Exercise lack of [None]
